FAERS Safety Report 5517769-5 (Version None)
Quarter: 2007Q4

REPORT INFORMATION
  Report Type: 
  Country: None (occurrence: None)
  Receive Date: 20071114
  Receipt Date: 20071106
  Transmission Date: 20080405
  Serious: Yes (Disabling, Other)
  Sender: FDA-Public Use
  Company Number: US-MERCK-0708USA04807

PATIENT
  Age: 43 Year
  Sex: Female

DRUGS (1)
  1. FOSAMAX [Suspect]
     Indication: OSTEOPOROSIS
     Route: 048
     Dates: start: 19980101

REACTIONS (12)
  - ANXIETY [None]
  - BACK INJURY [None]
  - CARPAL TUNNEL SYNDROME [None]
  - DEAFNESS [None]
  - DEPRESSION [None]
  - HAEMORRHOIDS [None]
  - JOINT INJURY [None]
  - NECK INJURY [None]
  - OSTEOARTHRITIS [None]
  - OSTEOMYELITIS [None]
  - OSTEONECROSIS [None]
  - ROAD TRAFFIC ACCIDENT [None]
